FAERS Safety Report 9619320 (Version 1)
Quarter: 2013Q4

REPORT INFORMATION
  Report Type: Spontaneous
  Country: GB (occurrence: GB)
  Receive Date: 20131014
  Receipt Date: 20131014
  Transmission Date: 20140711
  Serious: Yes (Hospitalization)
  Sender: FDA-Public Use
  Company Number: GB-PFIZER INC-2013291756

PATIENT
  Age: 15 Year
  Sex: Male

DRUGS (5)
  1. PHENYTOIN [Suspect]
     Indication: EPILEPSY
     Dosage: 150 MG, DAILY
  2. FOLIC ACID [Suspect]
     Dosage: UNK
  3. PHENOBARBITONE [Suspect]
     Indication: EPILEPSY
     Dosage: 180 MG, UNK
  4. PHENOBARBITONE [Suspect]
     Dosage: 120 MG, DAILY
  5. PHENOBARBITONE [Suspect]
     Dosage: 180 MG, UNK

REACTIONS (3)
  - Clumsiness [Unknown]
  - Mental retardation [Unknown]
  - Drug ineffective [Unknown]
